FAERS Safety Report 8002075-X (Version None)
Quarter: 2011Q4

REPORT INFORMATION
  Report Type: 
  Country: None (occurrence: None)
  Receive Date: 20111222
  Receipt Date: 20110324
  Transmission Date: 20120403
  Serious: No
  Sender: FDA-Public Use
  Company Number: US-BAYER-201017107BCC

PATIENT
  Age: 61 Year
  Sex: Female
  Weight: 79.545 kg

DRUGS (4)
  1. LISINOPRIL [Concomitant]
  2. NAPROXEN (ALEVE) [Suspect]
     Indication: PRODUCT USED FOR UNKNOWN INDICATION
     Route: 048
  3. ATENOLOL [Concomitant]
  4. ONE-A-DAY [MINERALS NOS,VITAMINS NOS] [Suspect]
     Indication: PRODUCT USED FOR UNKNOWN INDICATION
     Route: 048

REACTIONS (3)
  - SALIVARY HYPERSECRETION [None]
  - ABDOMINAL DISCOMFORT [None]
  - NAUSEA [None]
